FAERS Safety Report 9254169 (Version 2)
Quarter: 2013Q2

REPORT INFORMATION
  Report Type: Spontaneous
  Country: JP (occurrence: None)
  Receive Date: 20130419
  Receipt Date: 20130430
  Transmission Date: 20140414
  Serious: Yes (Other)
  Sender: FDA-Public Use
  Company Number: TCI2013A02034

PATIENT
  Sex: 0

DRUGS (1)
  1. NESINA (ALOGLIPTIN BENZOATE) TABLETS [Suspect]
     Indication: DIABETES MELLITUS
     Route: 048
     Dates: end: 20130408

REACTIONS (1)
  - Pancytopenia [None]
